FAERS Safety Report 7447744-5 (Version None)
Quarter: 2011Q2

REPORT INFORMATION
  Report Type: 
  Country: None (occurrence: None)
  Receive Date: 20110429
  Receipt Date: 20100813
  Transmission Date: 20111010
  Serious: No
  Sender: FDA-Public Use
  Company Number: US-ASTRAZENECA-2010SE38081

PATIENT
  Age: 18757 Day
  Sex: Female
  Weight: 88.5 kg

DRUGS (3)
  1. NEXIUM [Suspect]
     Indication: FLATULENCE
     Route: 048
     Dates: start: 20100810
  2. NEXIUM [Suspect]
     Indication: GALLBLADDER OPERATION
     Route: 048
     Dates: start: 20100810
  3. BLOOD PRESSURE MEDICATIONS [Concomitant]

REACTIONS (3)
  - DIARRHOEA [None]
  - FLATULENCE [None]
  - OROPHARYNGEAL PAIN [None]
